FAERS Safety Report 22336816 (Version 1)
Quarter: 2023Q2

REPORT INFORMATION
  Report Type: Spontaneous
  Country: US (occurrence: None)
  Receive Date: 20230518
  Receipt Date: 20230518
  Transmission Date: 20230721
  Serious: No
  Sender: FDA-Public Use
  Company Number: US-ROCHE-3182849

PATIENT
  Sex: Female

DRUGS (6)
  1. ACTEMRA [Suspect]
     Active Substance: TOCILIZUMAB
     Indication: Rheumatoid arthritis
     Dosage: STRENGTH 162MG/0.9M
     Route: 058
     Dates: start: 20220614
  2. ACTEMRA [Suspect]
     Active Substance: TOCILIZUMAB
  3. ACTEMRA [Suspect]
     Active Substance: TOCILIZUMAB
     Dosage: STRENGTH 162MG/0.9M
     Route: 058
     Dates: start: 202206
  4. ACTEMRA [Suspect]
     Active Substance: TOCILIZUMAB
  5. TYVASO [Concomitant]
     Active Substance: TREPROSTINIL
  6. ADEMPAS [Concomitant]
     Active Substance: RIOCIGUAT
     Indication: Hypotension
     Dosage: 1 MG THREE TIMES A DAY TO 0.5 MG THREE TIMES A DAY

REACTIONS (5)
  - Nausea [Unknown]
  - Decreased appetite [Unknown]
  - Dizziness [Unknown]
  - Hypotension [Unknown]
  - Weight decreased [Unknown]
